FAERS Safety Report 7989550-9 (Version None)
Quarter: 2011Q4

REPORT INFORMATION
  Report Type: 
  Country: None (occurrence: None)
  Receive Date: 20111219
  Receipt Date: 20111017
  Transmission Date: 20120403
  Serious: No
  Sender: FDA-Public Use
  Company Number: US-ASTRAZENECA-2011SE62402

PATIENT
  Sex: Female

DRUGS (5)
  1. CRESTOR [Suspect]
     Route: 048
     Dates: start: 20110901
  2. ASPIRIN [Suspect]
     Route: 065
     Dates: start: 20110901
  3. EXFORGE [Suspect]
     Route: 065
     Dates: start: 20110901
  4. BLOOD THINNERS [Concomitant]
  5. PLAVIX [Suspect]
     Route: 065
     Dates: start: 20110901

REACTIONS (1)
  - GINGIVAL BLEEDING [None]
